FAERS Safety Report 4355157-8 (Version None)
Quarter: 2004Q2

REPORT INFORMATION
  Report Type: 
  Country: None (occurrence: None)
  Receive Date: 20040504
  Receipt Date: 20040209
  Transmission Date: 20050107
  Serious: Yes (Hospitalization)
  Sender: FDA-Public Use
  Company Number: 200401814

PATIENT
  Age: 41 Year
  Sex: Female

DRUGS (1)
  1. ACETAMINOPHEN [Suspect]
     Dosage: PO
     Route: 048

REACTIONS (5)
  - ACCIDENTAL EXPOSURE [None]
  - BLOOD PH DECREASED [None]
  - DIALYSIS [None]
  - ENCEPHALOPATHY [None]
  - HEPATIC FAILURE [None]
